FAERS Safety Report 10014599 (Version 1)
Quarter: 2014Q1

REPORT INFORMATION
  Report Type: Spontaneous
  Country: NL (occurrence: NL)
  Receive Date: 20140317
  Receipt Date: 20140317
  Transmission Date: 20141002
  Serious: Yes (Disabling, Other)
  Sender: FDA-Public Use
  Company Number: NL-ELI_LILLY_AND_COMPANY-NL201403002499

PATIENT
  Sex: Male
  Weight: 82 kg

DRUGS (4)
  1. PROZAC [Suspect]
     Indication: DEPRESSION
     Dosage: 10 MG, BID
     Route: 048
     Dates: start: 2004
  2. PROZAC [Interacting]
     Indication: RESTLESS LEGS SYNDROME
  3. RIVOTRIL [Interacting]
     Indication: PRODUCT USED FOR UNKNOWN INDICATION
     Dosage: 2 MG, TID
     Dates: start: 2006
  4. OMEPRAZOL                          /00661201/ [Concomitant]
     Indication: PRODUCT USED FOR UNKNOWN INDICATION
     Dosage: 20 MG, BID
     Route: 065
     Dates: start: 2009

REACTIONS (4)
  - Aggression [Not Recovered/Not Resolved]
  - Drug interaction [Not Recovered/Not Resolved]
  - Irritability [Unknown]
  - Chills [Unknown]
